FAERS Safety Report 14372429 (Version 2)
Quarter: 2018Q1

REPORT INFORMATION
  Report Type: Report from Study
  Country: None (occurrence: US)
  Receive Date: 20180110
  Receipt Date: 20180209
  Transmission Date: 20180509
  Serious: Yes (Other)
  Sender: FDA-Public Use
  Company Number: US-ABBVIE-18K-163-2217711-00

PATIENT
  Age: 55 Year
  Sex: Male
  Weight: 92.16 kg

DRUGS (2)
  1. HUMIRA [Suspect]
     Active Substance: ADALIMUMAB
     Indication: PSORIASIS
     Route: 058
     Dates: start: 201702, end: 201702
  2. HUMIRA [Suspect]
     Active Substance: ADALIMUMAB
     Route: 058
     Dates: start: 201702

REACTIONS (6)
  - Skin discolouration [Unknown]
  - Dry skin [Unknown]
  - Blood glucose decreased [Recovered/Resolved]
  - Hypophagia [Unknown]
  - Loss of consciousness [Recovered/Resolved]
  - Sensitivity to weather change [Unknown]

NARRATIVE: CASE EVENT DATE: 201702
